FAERS Safety Report 25698580 (Version 5)
Quarter: 2025Q4

REPORT INFORMATION
  Report Type: Spontaneous
  Country: EU (occurrence: EU)
  Receive Date: 20250819
  Receipt Date: 20251118
  Transmission Date: 20260117
  Serious: Yes (Other)
  Sender: IPSEN BIOPHARMACEUTICALS, INC.
  Company Number: EU-IPSEN Group, Research and Development-2025-20234

PATIENT
  Age: 60 Year
  Sex: Female

DRUGS (9)
  1. LANREOTIDE ACETATE [Suspect]
     Active Substance: LANREOTIDE ACETATE
     Indication: Neuroendocrine tumour
     Dates: start: 20210208, end: 20210602
  2. LANREOTIDE ACETATE [Suspect]
     Active Substance: LANREOTIDE ACETATE
     Dates: start: 20221031
  3. CABOMETYX [Suspect]
     Active Substance: CABOZANTINIB S-MALATE
     Indication: Neuroendocrine tumour
  4. XGEVA [Concomitant]
     Active Substance: DENOSUMAB
     Dates: start: 20201228, end: 20220901
  5. CAPECITABINE [Concomitant]
     Active Substance: CAPECITABINE
     Dates: start: 20210903, end: 20211213
  6. Dacarbazine monotherapy [Concomitant]
     Dates: start: 20220307, end: 20220901
  7. FLUOROURACIL\LEUCOVORIN CALCIUM\OXALIPLATIN [Concomitant]
     Active Substance: FLUOROURACIL\LEUCOVORIN CALCIUM\OXALIPLATIN
  8. FILGRASTIM [Concomitant]
     Active Substance: FILGRASTIM
  9. DENOSUMAB [Concomitant]
     Active Substance: DENOSUMAB
     Dates: start: 20201228

REACTIONS (7)
  - Metastases to liver [Unknown]
  - Malignant neoplasm progression [Unknown]
  - Metastases to spleen [Unknown]
  - Metastases to bone [Unknown]
  - Splenic vein thrombosis [Unknown]
  - Hypertensive crisis [Not Recovered/Not Resolved]
  - Hypokalaemia [Unknown]

NARRATIVE: CASE EVENT DATE: 20210601
